FAERS Safety Report 13442766 (Version 5)
Quarter: 2018Q2

REPORT INFORMATION
  Report Type: Spontaneous
  Country: US (occurrence: US)
  Receive Date: 20170414
  Receipt Date: 20180423
  Transmission Date: 20180711
  Serious: Yes (Hospitalization, Other)
  Sender: FDA-Public Use
  Company Number: US-SA-2017SA064457

PATIENT
  Age: 57 Year
  Sex: Male
  Weight: 52.16 kg

DRUGS (14)
  1. CARBAMAZEPINE. [Suspect]
     Active Substance: CARBAMAZEPINE
     Route: 065
  2. KLONOPIN [Concomitant]
     Active Substance: CLONAZEPAM
     Dosage: 1 IN AFTERNOON AS NEEDED AND 2 AT BEDTIME ROUTINELY
  3. LISINOPRIL. [Concomitant]
     Active Substance: LISINOPRIL
  4. VALACICLOVIR [Concomitant]
     Active Substance: VALACYCLOVIR HYDROCHLORIDE
     Route: 065
  5. TIZANIDINE. [Concomitant]
     Active Substance: TIZANIDINE
     Route: 065
  6. GABAPENTIN. [Concomitant]
     Active Substance: GABAPENTIN
     Route: 065
  7. BACLOFEN. [Concomitant]
     Active Substance: BACLOFEN
     Route: 065
  8. CARBAMAZEPINE. [Suspect]
     Active Substance: CARBAMAZEPINE
     Route: 065
  9. FLOMAX [Concomitant]
     Active Substance: TAMSULOSIN HYDROCHLORIDE
     Indication: NEUROGENIC BLADDER
     Route: 048
  10. TAMSULOSIN [Concomitant]
     Active Substance: TAMSULOSIN
     Route: 065
  11. LEMTRADA [Suspect]
     Active Substance: ALEMTUZUMAB
     Indication: RELAPSING-REMITTING MULTIPLE SCLEROSIS
     Route: 041
     Dates: start: 20161031, end: 20161104
  12. TEGRETOL [Concomitant]
     Active Substance: CARBAMAZEPINE
     Indication: TRIGEMINAL NEURALGIA
  13. CLONAZEPAM. [Concomitant]
     Active Substance: CLONAZEPAM
     Indication: ANXIETY
  14. CARBAMAZEPINE. [Suspect]
     Active Substance: CARBAMAZEPINE
     Route: 065

REACTIONS (54)
  - Gastrointestinal pain [Not Recovered/Not Resolved]
  - Sensory loss [Unknown]
  - Speech disorder [Unknown]
  - Constipation [Unknown]
  - Haemoglobin decreased [Unknown]
  - Red blood cell count decreased [Unknown]
  - Hepatic cyst [Unknown]
  - Blood alkaline phosphatase increased [Unknown]
  - Blood sodium decreased [Unknown]
  - Multiple sclerosis [Unknown]
  - Pancreatitis acute [Recovering/Resolving]
  - Asthenia [Unknown]
  - Gaze palsy [Unknown]
  - Dizziness [Unknown]
  - Bone pain [Not Recovered/Not Resolved]
  - Blood urea decreased [Unknown]
  - Cardiomegaly [Unknown]
  - Drug level decreased [Unknown]
  - Lymphocyte count decreased [Unknown]
  - Dizziness [Not Recovered/Not Resolved]
  - Pancreatic cyst [Not Recovered/Not Resolved]
  - Staphylococcal infection [Unknown]
  - Arthralgia [Unknown]
  - Crystal urine present [Unknown]
  - CD4 lymphocytes decreased [Recovering/Resolving]
  - Pyrexia [Not Recovered/Not Resolved]
  - Weight decreased [Not Recovered/Not Resolved]
  - Renal cyst [Unknown]
  - Lipase increased [Unknown]
  - White blood cell count decreased [Unknown]
  - Pain [Not Recovered/Not Resolved]
  - Dysuria [Not Recovered/Not Resolved]
  - Autoimmune disorder [Unknown]
  - Fall [Unknown]
  - Feeding disorder [Not Recovered/Not Resolved]
  - Haematocrit decreased [Unknown]
  - Platelet count decreased [Unknown]
  - Nuclear magnetic resonance imaging abnormal [Unknown]
  - Muscular weakness [Unknown]
  - Hyperhidrosis [Unknown]
  - Decreased appetite [Not Recovered/Not Resolved]
  - Chills [Unknown]
  - Gastrointestinal disorder [Not Recovered/Not Resolved]
  - Urinary tract infection [Unknown]
  - Diplopia [Not Recovered/Not Resolved]
  - Ocular discomfort [Unknown]
  - Cognitive disorder [Unknown]
  - Muscle spasticity [Unknown]
  - Blood chloride decreased [Unknown]
  - Blood glucose increased [Unknown]
  - Bilirubin conjugated decreased [Unknown]
  - Amylase increased [Unknown]
  - Nausea [Unknown]
  - Fatigue [Unknown]

NARRATIVE: CASE EVENT DATE: 2016
